FAERS Safety Report 15813577 (Version 2)
Quarter: 2019Q1

REPORT INFORMATION
  Report Type: Spontaneous
  Country: US (occurrence: US)
  Receive Date: 20190111
  Receipt Date: 20190117
  Transmission Date: 20190417
  Serious: Yes (Death)
  Sender: FDA-Public Use
  Company Number: US-CELGENEUS-USA-20190103182

PATIENT
  Age: 72 Year
  Sex: Female

DRUGS (3)
  1. REVLIMID [Suspect]
     Active Substance: LENALIDOMIDE
     Indication: OSTEOARTHRITIS
     Dosage: 15 MILLIGRAM
     Route: 048
     Dates: start: 20180927
  2. REVLIMID [Suspect]
     Active Substance: LENALIDOMIDE
     Indication: OFF LABEL USE
  3. REVLIMID [Suspect]
     Active Substance: LENALIDOMIDE
     Indication: PLASMA CELL MYELOMA

REACTIONS (1)
  - Plasma cell myeloma [Fatal]

NARRATIVE: CASE EVENT DATE: 20190106
